FAERS Safety Report 7795780-1 (Version None)
Quarter: 2011Q4

REPORT INFORMATION
  Report Type: 
  Country: None (occurrence: None)
  Receive Date: 20111004
  Receipt Date: 20110921
  Transmission Date: 20120403
  Serious: Yes (Hospitalization)
  Sender: FDA-Public Use
  Company Number: SE-PFIZER INC-2011220983

PATIENT
  Age: 78 Year
  Sex: Female

DRUGS (7)
  1. LYRICA [Suspect]
     Indication: DEPRESSION
     Dosage: UNK
     Route: 048
     Dates: start: 20091217, end: 20100101
  2. DICLOFENAC [Suspect]
     Indication: PAIN
     Dosage: UNK
     Dates: start: 20091001, end: 20091001
  3. IBUPROFEN [Suspect]
     Indication: PAIN
     Dosage: UNK
     Route: 048
     Dates: start: 20091001, end: 20091001
  4. SIMVASTATIN [Concomitant]
     Dosage: UNK
  5. PLENDIL [Concomitant]
     Dosage: UNK
     Route: 048
  6. AMITRIPTYLINE HCL [Suspect]
     Indication: DEPRESSION
     Dosage: 25 MG, UNK
     Route: 048
     Dates: start: 20100105, end: 20100201
  7. AMILORIDE HCL AND HYDROCHLOROTHIAZIDE [Concomitant]
     Dosage: UNK
     Route: 048

REACTIONS (2)
  - FEELING ABNORMAL [None]
  - PULMONARY FIBROSIS [None]
